FAERS Safety Report 22200264 (Version 1)
Quarter: 2023Q2

REPORT INFORMATION
  Report Type: Other
  Country: NL (occurrence: None)
  Receive Date: 20230412
  Receipt Date: 20230412
  Transmission Date: 20230722
  Serious: Yes (Hospitalization)
  Sender: FDA-Public Use
  Company Number: NL-ROCHE-3324445

PATIENT
  Age: 50 Year
  Sex: Female

DRUGS (5)
  1. OCRELIZUMAB [Suspect]
     Active Substance: OCRELIZUMAB
     Indication: Relapsing-remitting multiple sclerosis
     Route: 042
     Dates: start: 201809
  2. OCRELIZUMAB [Suspect]
     Active Substance: OCRELIZUMAB
     Route: 042
     Dates: start: 202103
  3. OCRELIZUMAB [Suspect]
     Active Substance: OCRELIZUMAB
     Route: 042
     Dates: start: 202109
  4. SPIKEVAX [Suspect]
     Active Substance: ELASOMERAN
     Indication: COVID-19 prophylaxis
     Route: 065
     Dates: start: 202104
  5. SPIKEVAX [Suspect]
     Active Substance: ELASOMERAN
     Route: 065
     Dates: start: 202105

REACTIONS (3)
  - COVID-19 [Recovered/Resolved]
  - Humoral immune defect [Unknown]
  - Drug interaction [Unknown]

NARRATIVE: CASE EVENT DATE: 20210101
